FAERS Safety Report 17647437 (Version 1)
Quarter: 2020Q2

REPORT INFORMATION
  Report Type: Report from Study
  Country: None (occurrence: US)
  Receive Date: 20200408
  Receipt Date: 20200408
  Transmission Date: 20200713
  Serious: Yes (Other)
  Sender: FDA-Public Use
  Company Number: US-BIOVITRUM-2020US1630

PATIENT
  Sex: Female

DRUGS (1)
  1. KINERET [Suspect]
     Active Substance: ANAKINRA
     Indication: JUVENILE IDIOPATHIC ARTHRITIS
     Route: 058

REACTIONS (11)
  - Cushingoid [Unknown]
  - Cytopenia [Unknown]
  - Arthralgia [Unknown]
  - Skin exfoliation [Unknown]
  - Acne [Unknown]
  - Muscular weakness [Unknown]
  - Pyrexia [Unknown]
  - Inflammation [Unknown]
  - Flushing [Unknown]
  - Rash [Unknown]
  - Off label use [Unknown]
